FAERS Safety Report 6206571-7 (Version None)
Quarter: 2009Q2

REPORT INFORMATION
  Report Type: 
  Country: None (occurrence: None)
  Receive Date: 20090528
  Receipt Date: 20090522
  Transmission Date: 20091009
  Serious: No
  Sender: FDA-Public Use
  Company Number: US-JNJFOC-20090505700

PATIENT
  Sex: Female
  Weight: 104.33 kg

DRUGS (12)
  1. FENTANYL TRANSDERMAL SYSTEM [Suspect]
     Indication: RHEUMATOID ARTHRITIS
     Route: 062
  2. METOPROLOL SUCCINATE [Concomitant]
     Indication: HYPERTENSION
     Route: 048
  3. CYMBALTA [Concomitant]
     Indication: DEPRESSION
     Route: 048
  4. OMEPRAZOLE [Concomitant]
     Indication: GASTROOESOPHAGEAL REFLUX DISEASE
     Route: 048
  5. LOVASTATIN [Concomitant]
     Indication: HYPERTENSION
     Route: 048
  6. HYDROCHLOROTHIAZIDE [Concomitant]
     Indication: HYPERTENSION
     Dosage: 20/100 MG
     Route: 048
  7. COMBIVENT [Concomitant]
     Indication: CHRONIC OBSTRUCTIVE PULMONARY DISEASE
     Dosage: 4 PUFFS
     Route: 048
  8. ALPRAZOLAM [Concomitant]
     Indication: PANIC ATTACK
     Route: 048
  9. TRAZODONE HCL [Concomitant]
     Indication: SLEEP DISORDER
     Dosage: BEDTIME
     Route: 048
  10. TIZANIDINE HCL [Concomitant]
     Indication: PAIN
     Route: 048
  11. BONIVA [Concomitant]
     Indication: OSTEOPOROSIS
     Route: 048
  12. CALCIUM [Concomitant]
     Indication: OSTEOPOROSIS
     Route: 048

REACTIONS (1)
  - TREATMENT NONCOMPLIANCE [None]
